FAERS Safety Report 7354536-4 (Version None)
Quarter: 2011Q1

REPORT INFORMATION
  Report Type: 
  Country: None (occurrence: None)
  Receive Date: 20110308
  Receipt Date: 20110223
  Transmission Date: 20110831
  Serious: Yes (Other)
  Sender: FDA-Public Use
  Company Number: BR-001561

PATIENT
  Sex: Male

DRUGS (1)
  1. NAGLAZYME [Suspect]
     Indication: MUCOPOLYSACCHARIDOSIS VI
     Dosage: (20 MG 1X/WEEK INTRAVENOUS DRIP)
     Route: 041
     Dates: start: 20090709

REACTIONS (3)
  - TRACHEOSTOMY [None]
  - OTITIS MEDIA ACUTE [None]
  - SPINAL LAMINECTOMY [None]
